FAERS Safety Report 9376420 (Version 2)
Quarter: 2013Q3

REPORT INFORMATION
  Report Type: Spontaneous
  Country: KR (occurrence: KR)
  Receive Date: 20130701
  Receipt Date: 20130708
  Transmission Date: 20140515
  Serious: Yes (Other)
  Sender: FDA-Public Use
  Company Number: KR-JNJFOC-20130619655

PATIENT
  Sex: 0

DRUGS (1)
  1. INFLIXIMAB [Suspect]
     Indication: CROHN^S DISEASE
     Route: 042

REACTIONS (1)
  - Herpes zoster [Recovering/Resolving]
